FAERS Safety Report 7480769-2 (Version None)
Quarter: 2011Q2

REPORT INFORMATION
  Report Type: 
  Country: None (occurrence: None)
  Receive Date: 20110506
  Receipt Date: 20110420
  Transmission Date: 20111010
  Serious: Yes (Other)
  Sender: FDA-Public Use
  Company Number: GB-DEXPHARM-20110462

PATIENT
  Age: 71 Year
  Sex: Male

DRUGS (9)
  1. PROCTOS [Concomitant]
  2. MOVIPREP [Concomitant]
  3. NICORANDIL [Concomitant]
  4. TRAMADOL HCL [Concomitant]
  5. PRAVASTATIN [Concomitant]
  6. VITAMIN B COMPLEX CAP [Concomitant]
  7. OMEPRAZOLE [Suspect]
     Dosage: DOSE: 20 MILLIGRAM(S)
     Route: 048
  8. DILTIAZEM HCL [Concomitant]
  9. ASPIRIN [Concomitant]

REACTIONS (2)
  - HAEMATEMESIS [None]
  - MALAISE [None]
